FAERS Safety Report 13648933 (Version 6)
Quarter: 2018Q1

REPORT INFORMATION
  Report Type: Report from Study
  Country: CA (occurrence: CA)
  Receive Date: 20170613
  Receipt Date: 20180102
  Transmission Date: 20180508
  Serious: Yes (Other)
  Sender: FDA-Public Use
  Company Number: PHHY2016CA157614

PATIENT
  Age: 36 Year
  Sex: Female

DRUGS (13)
  1. BETAHISTINE TEVA [Concomitant]
     Indication: PRODUCT USED FOR UNKNOWN INDICATION
     Dosage: UNK
     Route: 065
     Dates: start: 201607
  2. ZANTAC [Concomitant]
     Active Substance: RANITIDINE HYDROCHLORIDE
     Indication: PRODUCT USED FOR UNKNOWN INDICATION
     Route: 065
     Dates: start: 201610
  3. XOLAIR [Suspect]
     Active Substance: OMALIZUMAB
     Dosage: UNK
     Route: 058
     Dates: start: 20161207
  4. PREDNISONE. [Concomitant]
     Active Substance: PREDNISONE
     Indication: PRODUCT USED FOR UNKNOWN INDICATION
     Route: 065
  5. TRAMADOL. [Suspect]
     Active Substance: TRAMADOL
     Indication: PRODUCT USED FOR UNKNOWN INDICATION
     Route: 065
     Dates: end: 20170116
  6. AERIUS [Concomitant]
     Active Substance: DESLORATADINE
     Indication: PRODUCT USED FOR UNKNOWN INDICATION
     Route: 065
  7. BENADRYL [Concomitant]
     Active Substance: DIPHENHYDRAMINE HYDROCHLORIDE
     Indication: PRODUCT USED FOR UNKNOWN INDICATION
     Route: 065
  8. ZYRTEC [Concomitant]
     Active Substance: CETIRIZINE HYDROCHLORIDE
     Indication: PRODUCT USED FOR UNKNOWN INDICATION
     Dosage: UNK
     Route: 065
     Dates: start: 201609
  9. XOLAIR [Suspect]
     Active Substance: OMALIZUMAB
     Dosage: 300 MG, EVERY 4 WEEKS
     Route: 058
     Dates: start: 20170105, end: 20170105
  10. ZOFRAN [Suspect]
     Active Substance: ONDANSETRON HYDROCHLORIDE
     Indication: PRODUCT USED FOR UNKNOWN INDICATION
     Route: 040
  11. XOLAIR [Suspect]
     Active Substance: OMALIZUMAB
     Indication: CHRONIC SPONTANEOUS URTICARIA
     Dosage: 300 MG, EVERY 4 WEEKS
     Route: 058
     Dates: start: 20161110
  12. ATARAX [Concomitant]
     Active Substance: HYDROXYZINE HYDROCHLORIDE
     Indication: PRODUCT USED FOR UNKNOWN INDICATION
     Route: 065
  13. RANITIDINE. [Concomitant]
     Active Substance: RANITIDINE
     Indication: PRODUCT USED FOR UNKNOWN INDICATION
     Dosage: UNK
     Route: 065
     Dates: start: 201609

REACTIONS (31)
  - Jaw fracture [Unknown]
  - Temperature intolerance [Unknown]
  - Feeling abnormal [Unknown]
  - Neck pain [Unknown]
  - Fatigue [Not Recovered/Not Resolved]
  - Urticaria [Unknown]
  - Brain injury [Recovered/Resolved]
  - Bone pain [Unknown]
  - Hyperhidrosis [Unknown]
  - Food allergy [Unknown]
  - Hair colour changes [Unknown]
  - Musculoskeletal pain [Unknown]
  - Drug ineffective [Recovered/Resolved]
  - Malaise [Unknown]
  - Weight decreased [Unknown]
  - Blood immunoglobulin E increased [Unknown]
  - Photosensitivity reaction [Unknown]
  - Pain [Recovered/Resolved]
  - Blood pressure decreased [Unknown]
  - Nightmare [Unknown]
  - Swelling [Not Recovered/Not Resolved]
  - Skin infection [Recovered/Resolved]
  - Hair colour changes [Recovered/Resolved]
  - Hypokinesia [Unknown]
  - Alopecia [Recovered/Resolved]
  - Somnolence [Unknown]
  - Dizziness [Unknown]
  - Bruxism [Unknown]
  - Food intolerance [Unknown]
  - Pain in extremity [Unknown]
  - Alopecia [Unknown]

NARRATIVE: CASE EVENT DATE: 20161110
